FAERS Safety Report 4342354-0 (Version None)
Quarter: 2004Q2

REPORT INFORMATION
  Report Type: 
  Country: None (occurrence: None)
  Receive Date: 20040415
  Receipt Date: 20040407
  Transmission Date: 20050107
  Serious: Yes (Hospitalization)
  Sender: FDA-Public Use
  Company Number: US-JNJFOC-20040401771

PATIENT
  Age: 32 Year
  Sex: Female

DRUGS (7)
  1. DURAGESIC [Suspect]
     Indication: PAIN
     Dosage: SEE IMAGE
     Route: 062
     Dates: end: 20040405
  2. DURAGESIC [Suspect]
     Indication: PAIN
     Dosage: SEE IMAGE
     Route: 062
     Dates: start: 20020101
  3. COMPAZINE [Concomitant]
  4. PROTONIX [Concomitant]
  5. XANAX [Concomitant]
  6. ATIVAN [Concomitant]
  7. PROZAC [Concomitant]

REACTIONS (3)
  - DEHYDRATION [None]
  - PNEUMONIA [None]
  - TREMOR [None]
